FAERS Safety Report 6842385-2 (Version None)
Quarter: 2010Q3

REPORT INFORMATION
  Report Type: 
  Country: None (occurrence: None)
  Receive Date: 20100714
  Receipt Date: 20070725
  Transmission Date: 20110219
  Serious: No
  Sender: FDA-Public Use
  Company Number: US-PFIZER INC-2007063401

PATIENT
  Sex: Female
  Weight: 63.6 kg

DRUGS (7)
  1. CHANTIX [Suspect]
     Indication: SMOKING CESSATION THERAPY
     Dates: start: 20070718
  2. TENORMIN [Concomitant]
  3. ALLOPURINOL [Concomitant]
  4. ZETIA [Concomitant]
  5. LEXAPRO [Concomitant]
  6. LOZOL [Concomitant]
  7. SYNTHROID [Concomitant]

REACTIONS (3)
  - ABNORMAL DREAMS [None]
  - CONSTIPATION [None]
  - FLATULENCE [None]
